FAERS Safety Report 9432627 (Version 1)
Quarter: 2013Q3

REPORT INFORMATION
  Report Type: Spontaneous
  Country: US (occurrence: US)
  Receive Date: 20130731
  Receipt Date: 20130731
  Transmission Date: 20140515
  Serious: No
  Sender: FDA-Public Use
  Company Number: US-BAYER-2013-091431

PATIENT
  Age: 31 Year
  Sex: Female
  Weight: 52.15 kg

DRUGS (3)
  1. ALEVE TABLET [Suspect]
     Indication: HEADACHE
     Route: 048
  2. KLONOPIN [Concomitant]
  3. PAXIL [Concomitant]

REACTIONS (2)
  - Incorrect dose administered [None]
  - Intentional drug misuse [None]
